FAERS Safety Report 9735020 (Version 1)
Quarter: 2013Q4

REPORT INFORMATION
  Report Type: Spontaneous
  Country: US (occurrence: US)
  Receive Date: 20131206
  Receipt Date: 20131206
  Transmission Date: 20140711
  Serious: No
  Sender: FDA-Public Use
  Company Number: US-ELI_LILLY_AND_COMPANY-US201311008947

PATIENT
  Age: 60 Year
  Sex: Male

DRUGS (4)
  1. CIALIS [Suspect]
     Indication: ERECTILE DYSFUNCTION
     Dosage: 5 MG, QD
     Route: 048
     Dates: start: 201310
  2. CIALIS [Suspect]
     Dosage: 5 MG, PRN
     Route: 048
  3. AXIRON [Concomitant]
     Indication: PRODUCT USED FOR UNKNOWN INDICATION
     Dosage: 1 DF, UNKNOWN
     Dates: start: 201309
  4. POTASSIUM CITRATE [Concomitant]
     Indication: PRODUCT USED FOR UNKNOWN INDICATION
     Dosage: 10 MG, TID
     Route: 065

REACTIONS (9)
  - Tinnitus [Recovered/Resolved]
  - Vision blurred [Recovered/Resolved]
  - Lymphadenopathy [Unknown]
  - Sinusitis [Unknown]
  - Cough [Unknown]
  - Eye pain [Recovered/Resolved]
  - Chest pain [Unknown]
  - Inappropriate schedule of drug administration [Unknown]
  - Therapeutic response prolonged [Unknown]
